FAERS Safety Report 7398004-2 (Version None)
Quarter: 2011Q2

REPORT INFORMATION
  Report Type: 
  Country: None (occurrence: None)
  Receive Date: 20110406
  Receipt Date: 20110331
  Transmission Date: 20111010
  Serious: Yes (Other)
  Sender: FDA-Public Use
  Company Number: US-PFIZER INC-2011072372

PATIENT
  Sex: Female

DRUGS (3)
  1. LIPITOR [Suspect]
     Indication: BLOOD CHOLESTEROL INCREASED
     Dosage: UNK
     Dates: start: 19890819
  2. DILANTIN-125 [Suspect]
     Indication: CONVULSION
     Dosage: 400MG
     Dates: start: 19890819
  3. DILANTIN-125 [Suspect]
     Dosage: 600MG

REACTIONS (1)
  - BRAIN INJURY [None]
